FAERS Safety Report 4368125-7 (Version None)
Quarter: 2004Q2

REPORT INFORMATION
  Report Type: 
  Country: None (occurrence: None)
  Receive Date: 20040602
  Receipt Date: 20040524
  Transmission Date: 20050107
  Serious: Yes (Disabling)
  Sender: FDA-Public Use
  Company Number: JP-MERCK-0405USA01905

PATIENT
  Age: 78 Year

DRUGS (5)
  1. BEZAFIBRATE [Concomitant]
     Indication: HYPERLIPIDAEMIA
     Route: 048
  2. FLUTICASONE PROPIONATE [Concomitant]
     Route: 065
  3. COZAAR [Suspect]
     Indication: HYPERTENSION
     Route: 048
  4. TULOBUTEROL [Concomitant]
     Route: 065
  5. ZAFIRLUKAST [Concomitant]
     Route: 065

REACTIONS (2)
  - HAEMATURIA [None]
  - MYOGLOBIN BLOOD INCREASED [None]
